FAERS Safety Report 25287405 (Version 2)
Quarter: 2025Q2

REPORT INFORMATION
  Report Type: Spontaneous
  Country: US (occurrence: US)
  Receive Date: 20250509
  Receipt Date: 20250605
  Transmission Date: 20250717
  Serious: Yes (Hospitalization)
  Sender: UROGEN PHARMA
  Company Number: US-UROGEN PHARMA LTD.-2025-UGN-000071

PATIENT

DRUGS (5)
  1. JELMYTO [Suspect]
     Active Substance: MITOMYCIN
     Indication: Product used for unknown indication
     Route: 065
  2. JELMYTO [Suspect]
     Active Substance: MITOMYCIN
     Route: 065
  3. JELMYTO [Suspect]
     Active Substance: MITOMYCIN
     Route: 065
  4. JELMYTO [Suspect]
     Active Substance: MITOMYCIN
     Route: 065
  5. JELMYTO [Suspect]
     Active Substance: MITOMYCIN
     Route: 065

REACTIONS (1)
  - Illness [Unknown]

NARRATIVE: CASE EVENT DATE: 20250101
